FAERS Safety Report 22292804 (Version 4)
Quarter: 2023Q2

REPORT INFORMATION
  Report Type: Spontaneous
  Country: US (occurrence: US)
  Receive Date: 20230508
  Receipt Date: 20230629
  Transmission Date: 20230721
  Serious: Yes (Hospitalization, Other)
  Sender: FDA-Public Use
  Company Number: US-ABBVIE-4753804

PATIENT
  Sex: Female

DRUGS (3)
  1. SYNTHROID [Suspect]
     Active Substance: LEVOTHYROXINE SODIUM
     Indication: Hypothyroidism
     Dosage: FORM STRENGTH: 125 MICROGRAM
     Route: 048
     Dates: start: 1978
  2. THYROID [Suspect]
     Active Substance: LEVOTHYROXINE\LIOTHYRONINE
     Indication: Product used for unknown indication
     Dosage: NATURAL
     Route: 065
  3. LEVOTHYROXINE [Suspect]
     Active Substance: LEVOTHYROXINE
     Indication: Hypothyroidism
     Dosage: FORM STRENGTH: 125 MICROGRAM
     Route: 048

REACTIONS (29)
  - Arthropathy [Recovering/Resolving]
  - Grip strength decreased [Recovering/Resolving]
  - Cervical vertebral fracture [Recovering/Resolving]
  - Arthropathy [Recovering/Resolving]
  - Arthritis [Recovering/Resolving]
  - Joint injury [Recovering/Resolving]
  - Spondylitis [Unknown]
  - Musculoskeletal disorder [Recovering/Resolving]
  - Drug ineffective [Not Recovered/Not Resolved]
  - Fatigue [Unknown]
  - Joint range of motion decreased [Recovering/Resolving]
  - Back disorder [Recovering/Resolving]
  - Arthralgia [Recovering/Resolving]
  - Illness [Recovered/Resolved]
  - Arthritis [Recovering/Resolving]
  - Joint swelling [Unknown]
  - Dysstasia [Unknown]
  - Fall [Recovered/Resolved]
  - Gait disturbance [Recovering/Resolving]
  - Ligament pain [Recovering/Resolving]
  - Spinal disorder [Recovering/Resolving]
  - Arthropathy [Recovering/Resolving]
  - Meniscus injury [Recovering/Resolving]
  - Neck pain [Recovering/Resolving]
  - Back pain [Recovering/Resolving]
  - Product container issue [Unknown]
  - Dyspepsia [Unknown]
  - Arthritis [Recovering/Resolving]
  - Knee operation [Unknown]

NARRATIVE: CASE EVENT DATE: 20070101
